FAERS Safety Report 4896313-X (Version None)
Quarter: 2006Q1

REPORT INFORMATION
  Report Type: 
  Country: None (occurrence: None)
  Receive Date: 20060131
  Receipt Date: 20060120
  Transmission Date: 20060701
  Serious: Yes (Other)
  Sender: FDA-Public Use
  Company Number: US-JNJFOC-20051104695

PATIENT
  Sex: Female
  Weight: 55.34 kg

DRUGS (1)
  1. TOPAMAX [Suspect]
     Indication: DRUG THERAPY

REACTIONS (6)
  - ASTHMA [None]
  - BRONCHITIS [None]
  - SALIVARY GLAND ENLARGEMENT [None]
  - SALIVARY GLAND PAIN [None]
  - TOOTH INFECTION [None]
  - WEIGHT DECREASED [None]
